FAERS Safety Report 15484399 (Version 3)
Quarter: 2019Q3

REPORT INFORMATION
  Report Type: Spontaneous
  Country: CA (occurrence: CA)
  Receive Date: 20181010
  Receipt Date: 20190805
  Transmission Date: 20191004
  Serious: Yes (Life-Threatening, Other)
  Sender: FDA-Public Use
  Company Number: CA-TEVA-2018-CA-962971

PATIENT
  Age: 54 Year
  Sex: Female

DRUGS (2)
  1. RISEDRONATE SODIUM UNK [Suspect]
     Active Substance: RISEDRONATE SODIUM
     Indication: OSTEOGENESIS IMPERFECTA
  2. RISEDRONATE SODIUM UNK [Suspect]
     Active Substance: RISEDRONATE SODIUM
     Indication: BONE LOSS
     Route: 065
     Dates: start: 201403, end: 201410

REACTIONS (2)
  - Atypical femur fracture [Unknown]
  - Plasma cell myeloma [Unknown]

NARRATIVE: CASE EVENT DATE: 201410
